FAERS Safety Report 5309387-9 (Version None)
Quarter: 2007Q2

REPORT INFORMATION
  Report Type: 
  Country: None (occurrence: None)
  Receive Date: 20070424
  Receipt Date: 20070424
  Transmission Date: 20071010
  Serious: Yes (Life-Threatening, Hospitalization)
  Sender: FDA-Public Use
  Company Number: None

PATIENT
  Sex: Female
  Weight: 57 kg

DRUGS (1)
  1. CLOPIDOGREL [Suspect]
     Indication: PROSTHESIS IMPLANTATION
     Dosage: 75MG DAILY PO
     Route: 048
     Dates: start: 20061001, end: 20070415

REACTIONS (4)
  - ANAEMIA [None]
  - EPISTAXIS [None]
  - RENAL IMPAIRMENT [None]
  - THROMBOTIC THROMBOCYTOPENIC PURPURA [None]
